FAERS Safety Report 5846580-0 (Version None)
Quarter: 2008Q3

REPORT INFORMATION
  Report Type: 
  Country: None (occurrence: None)
  Receive Date: 20080815
  Receipt Date: 20080801
  Transmission Date: 20090109
  Serious: Yes (Hospitalization)
  Sender: FDA-Public Use
  Company Number: JP-ELI_LILLY_AND_COMPANY-JP200807002395

PATIENT
  Sex: Female
  Weight: 40 kg

DRUGS (3)
  1. GEMZAR [Suspect]
     Indication: PANCREATIC CARCINOMA STAGE IV
     Route: 042
     Dates: start: 20080609, end: 20080623
  2. NASEA [Concomitant]
     Indication: PROPHYLAXIS
     Dosage: 0.3 MG, UNK
     Route: 042
     Dates: start: 20080609, end: 20080623
  3. DECADRON [Concomitant]
     Indication: PROPHYLAXIS
     Dosage: 8 MG, UNK
     Route: 042
     Dates: start: 20080609, end: 20080624

REACTIONS (2)
  - INTERSTITIAL LUNG DISEASE [None]
  - PANCREATIC PSEUDOCYST [None]
